FAERS Safety Report 9135159 (Version 2)
Quarter: 2013Q1

REPORT INFORMATION
  Report Type: Spontaneous
  Country: JP (occurrence: JP)
  Receive Date: 20130304
  Receipt Date: 20130308
  Transmission Date: 20140127
  Serious: Yes (Hospitalization)
  Sender: FDA-Public Use
  Company Number: JP-PFIZER INC-2013072879

PATIENT
  Age: 71 Year
  Sex: Male

DRUGS (3)
  1. HALCION [Suspect]
     Indication: INSOMNIA
     Dosage: UNK
     Route: 048
     Dates: start: 20130118
  2. AMLODIPINE BESILATE [Concomitant]
  3. TANATRIL ^TANABE^ [Concomitant]

REACTIONS (2)
  - Interstitial lung disease [Unknown]
  - Rhabdomyolysis [Unknown]
